FAERS Safety Report 20017652 (Version 1)
Quarter: 2021Q4

REPORT INFORMATION
  Report Type: Spontaneous
  Country: None (occurrence: GB)
  Receive Date: 20211031
  Receipt Date: 20211031
  Transmission Date: 20220304
  Serious: Yes (Other)
  Sender: FDA-Public Use
  Company Number: GB-Ascend Therapeutics US, LLC-2121234

PATIENT
  Sex: Female

DRUGS (4)
  1. ESTROGEL [Suspect]
     Active Substance: ESTRADIOL
     Indication: Hormone replacement therapy
     Route: 065
  2. ESTROGEL [Suspect]
     Active Substance: ESTRADIOL
  3. ESTRADIOL [Suspect]
     Active Substance: ESTRADIOL
     Route: 065
  4. ESTRADIOL [Suspect]
     Active Substance: ESTRADIOL
     Route: 065

REACTIONS (8)
  - Menopausal symptoms [Recovered/Resolved]
  - Drug ineffective [Recovered/Resolved]
  - Hot flush [Unknown]
  - Arthralgia [Unknown]
  - Night sweats [Unknown]
  - Headache [Unknown]
  - Product packaging issue [None]
  - Product quality issue [None]

NARRATIVE: CASE EVENT DATE: 20210101
